FAERS Safety Report 19314073 (Version 2)
Quarter: 2021Q2

REPORT INFORMATION
  Report Type: Spontaneous
  Country: US (occurrence: US)
  Receive Date: 20210527
  Receipt Date: 20210531
  Transmission Date: 20210717
  Serious: Yes (Death)
  Sender: FDA-Public Use
  Company Number: US-TEVA-2021-US-1914629

PATIENT
  Sex: Male

DRUGS (1)
  1. AUSTEDO [Suspect]
     Active Substance: DEUTETRABENAZINE
     Dosage: 54MG, DAILY
     Route: 001
     Dates: start: 20190720, end: 20210512

REACTIONS (3)
  - Incorrect route of product administration [Unknown]
  - Death [Fatal]
  - Incorrect dose administered [Unknown]
